FAERS Safety Report 6263828-1 (Version None)
Quarter: 2009Q3

REPORT INFORMATION
  Report Type: 
  Country: None (occurrence: None)
  Receive Date: 20090710
  Receipt Date: 20070809
  Transmission Date: 20100115
  Serious: Yes (Other)
  Sender: FDA-Public Use
  Company Number: US-ASTRAZENECA-2006UW21271

PATIENT
  Age: 19272 Day
  Sex: Female
  Weight: 76.2 kg

DRUGS (55)
  1. SEROQUEL [Suspect]
     Indication: DEPRESSION
     Dosage: 25 - 800 MG
     Route: 048
     Dates: start: 20010201
  2. HALDOL [Concomitant]
  3. NAVANE [Concomitant]
  4. RISPERDAL [Concomitant]
  5. TRILAFON [Concomitant]
  6. ZYPREXA [Concomitant]
  7. PROVENTIL-HFA [Concomitant]
  8. FUROSEMIDE [Concomitant]
  9. KETOROLAC TROMETHAMINE [Concomitant]
  10. GLUCOPHAGE [Concomitant]
  11. ACETAMINOPHEN [Concomitant]
  12. ULTRAM [Concomitant]
  13. LOXAPINE [Concomitant]
  14. LOPRESSOR [Concomitant]
  15. ATARAX [Concomitant]
  16. ABILIFY [Concomitant]
  17. ASPIRIN [Concomitant]
  18. GLUCOTROL [Concomitant]
  19. BENADRYL [Concomitant]
  20. NOVOLIN R [Concomitant]
  21. DESYREL [Concomitant]
  22. GEODON [Concomitant]
  23. ROBITUSSIN [Concomitant]
  24. SINEQUAN [Concomitant]
  25. ATIVAN [Concomitant]
  26. RESTORIL [Concomitant]
  27. HEPARIN SODIUM [Concomitant]
  28. UNASYN [Concomitant]
  29. DYAZIDE [Concomitant]
  30. TYLENOL [Concomitant]
  31. COGENTIN [Concomitant]
  32. MOTRIN [Concomitant]
  33. ZOLOFT [Concomitant]
  34. ALLEGRA D 24 HOUR [Concomitant]
  35. NABUMETONE [Concomitant]
  36. NICORETTE [Concomitant]
  37. XANAX [Concomitant]
  38. PRINIVIL [Concomitant]
  39. DEPAKOTE [Concomitant]
  40. PAXIL [Concomitant]
  41. PHENERGAN [Concomitant]
  42. AMOXIL [Concomitant]
  43. PERMITIL [Concomitant]
  44. VASOTEC [Concomitant]
  45. SPIRIVA [Concomitant]
  46. DEPAKENE [Concomitant]
  47. NAPROSYN [Concomitant]
  48. KLONOPIN [Concomitant]
  49. NEURONTIN [Concomitant]
  50. NITROSTAT [Concomitant]
  51. COLACE [Concomitant]
  52. REMERON [Concomitant]
  53. PROTONIX [Concomitant]
  54. RANITIDINE [Concomitant]
  55. CODEINE [Concomitant]

REACTIONS (5)
  - DIABETES MELLITUS [None]
  - DIABETES MELLITUS INADEQUATE CONTROL [None]
  - DIABETIC AUTONOMIC NEUROPATHY [None]
  - DIABETIC COMA [None]
  - HYPERGLYCAEMIA [None]
